FAERS Safety Report 18732132 (Version 3)
Quarter: 2021Q1

REPORT INFORMATION
  Report Type: Spontaneous
  Country: US (occurrence: US)
  Receive Date: 20210112
  Receipt Date: 20210208
  Transmission Date: 20210419
  Serious: Yes (Other)
  Sender: FDA-Public Use
  Company Number: US-009507513-2101USA002395

PATIENT
  Age: 61 Year
  Sex: Male
  Weight: 126.98 kg

DRUGS (5)
  1. TICE BCG [Suspect]
     Active Substance: BACILLUS CALMETTE-GUERIN SUBSTRAIN TICE LIVE ANTIGEN
     Dosage: 50 UNITS INTRAVESICAL, ONCE A WEEK/ EVERY WEEK FOR 6 WEEKS
     Route: 043
     Dates: start: 20180913, end: 20180913
  2. TICE BCG [Suspect]
     Active Substance: BACILLUS CALMETTE-GUERIN SUBSTRAIN TICE LIVE ANTIGEN
     Indication: BLADDER CANCER
     Dosage: 50 UNITS INTRAVESICAL, ONCE A WEEK/ EVERY WEEK FOR 6 WEEKS
     Route: 043
     Dates: start: 20180809, end: 20180809
  3. TICE BCG [Suspect]
     Active Substance: BACILLUS CALMETTE-GUERIN SUBSTRAIN TICE LIVE ANTIGEN
     Dosage: 50 UNITS INTRAVESICAL, ONCE A WEEK/ EVERY WEEK FOR 6 WEEKS
     Route: 043
     Dates: start: 20180816, end: 20180816
  4. TICE BCG [Suspect]
     Active Substance: BACILLUS CALMETTE-GUERIN SUBSTRAIN TICE LIVE ANTIGEN
     Dosage: 50 UNITS INTRAVESICAL, ONCE A WEEK/ EVERY WEEK FOR 6 WEEKS
     Route: 043
     Dates: start: 20180830, end: 20180830
  5. TICE BCG [Suspect]
     Active Substance: BACILLUS CALMETTE-GUERIN SUBSTRAIN TICE LIVE ANTIGEN
     Dosage: 50 UNITS INTRAVESICAL, ONCE A WEEK/ EVERY WEEK FOR 6 WEEKS
     Route: 043
     Dates: start: 20180823, end: 20180823

REACTIONS (6)
  - Inability to afford medication [Unknown]
  - Bladder catheterisation [Unknown]
  - Transurethral bladder resection [Unknown]
  - Product dose omission issue [Unknown]
  - Bladder cancer recurrent [Unknown]
  - Blood urine [Unknown]

NARRATIVE: CASE EVENT DATE: 20180906
